FAERS Safety Report 6557741-X (Version None)
Quarter: 2010Q1

REPORT INFORMATION
  Report Type: 
  Country: None (occurrence: None)
  Receive Date: 20100128
  Receipt Date: 20100128
  Transmission Date: 20100710
  Serious: Yes (Other)
  Sender: FDA-Public Use
  Company Number: None

PATIENT
  Sex: Male
  Weight: 102.0593 kg

DRUGS (4)
  1. CHANTIX [Suspect]
     Indication: CARDIAC DISORDER
     Dosage: 1MG 2 DAILY
     Dates: start: 20091101
  2. CHANTIX [Suspect]
     Indication: SMOKING CESSATION THERAPY
     Dosage: 1MG 2 DAILY
     Dates: start: 20091101
  3. CHANTIX [Suspect]
     Indication: CARDIAC DISORDER
     Dosage: 1MG 2 DAILY
     Dates: start: 20100109
  4. CHANTIX [Suspect]
     Indication: SMOKING CESSATION THERAPY
     Dosage: 1MG 2 DAILY
     Dates: start: 20100109

REACTIONS (2)
  - AGGRESSION [None]
  - AMNESIA [None]
